FAERS Safety Report 15708939 (Version 1)
Quarter: 2018Q4

REPORT INFORMATION
  Report Type: Spontaneous
  Country: US (occurrence: US)
  Receive Date: 20181128
  Receipt Date: 20181128
  Transmission Date: 20190205
  Serious: No
  Sender: FDA-Public Use
  Company Number: None

PATIENT
  Age: 74 Year
  Sex: Female

DRUGS (2)
  1. CYCLOSPORINE MODIFIED [Suspect]
     Active Substance: CYCLOSPORINE
     Route: 048
     Dates: start: 20160811
  2. MYCOPHENOLATE [Suspect]
     Active Substance: MYCOPHENOLIC ACID

REACTIONS (2)
  - Expired product administered [None]
  - Diarrhoea [None]

NARRATIVE: CASE EVENT DATE: 20181123
